FAERS Safety Report 20878034 (Version 3)
Quarter: 2022Q2

REPORT INFORMATION
  Report Type: Spontaneous
  Country: IN (occurrence: IN)
  Receive Date: 20220526
  Receipt Date: 20220603
  Transmission Date: 20220721
  Serious: Yes (Other)
  Sender: FDA-Public Use
  Company Number: IN-PFIZER INC-2021289183

PATIENT
  Age: 59 Year
  Sex: Male

DRUGS (3)
  1. DACOMITINIB [Suspect]
     Active Substance: DACOMITINIB
     Dosage: 30 MG, 1X/DAY
     Route: 048
     Dates: start: 202010
  2. DACOMITINIB [Suspect]
     Active Substance: DACOMITINIB
     Dosage: 30 MG, 1X/DAY
     Route: 048
     Dates: start: 20210203
  3. DACOMITINIB [Suspect]
     Active Substance: DACOMITINIB
     Dosage: 15 MG, 1X/DAY
     Route: 048

REACTIONS (10)
  - Haematochezia [Unknown]
  - Croup infectious [Unknown]
  - Rash [Unknown]
  - Haemoglobin decreased [Unknown]
  - Neoplasm progression [Unknown]
  - Chills [Unknown]
  - Acne [Unknown]
  - Pain [Unknown]
  - Pleural effusion [Unknown]
  - Respiratory disorder [Unknown]
